FAERS Safety Report 12549259 (Version 2)
Quarter: 2016Q3

REPORT INFORMATION
  Report Type: Spontaneous
  Country: CA (occurrence: CA)
  Receive Date: 20160712
  Receipt Date: 20160915
  Transmission Date: 20161109
  Serious: Yes (Hospitalization)
  Sender: FDA-Public Use
  Company Number: CA-IMPAX LABORATORIES, INC-2016-IPXL-00708

PATIENT
  Age: 6 Month
  Sex: Female
  Weight: 6.5 kg

DRUGS (2)
  1. BUPROPION XL [Suspect]
     Active Substance: BUPROPION
     Indication: PRODUCT USED FOR UNKNOWN INDICATION
     Dosage: UNK
     Route: 063
  2. ESCITALOPRAM [Interacting]
     Active Substance: ESCITALOPRAM OXALATE
     Indication: PRODUCT USED FOR UNKNOWN INDICATION
     Dosage: UNK
     Route: 063

REACTIONS (10)
  - Hypertonia [Recovered/Resolved]
  - Unresponsive to stimuli [Recovered/Resolved]
  - Staring [Recovered/Resolved]
  - Drug interaction [Recovered/Resolved]
  - Seizure like phenomena [Recovered/Resolved]
  - Cyanosis [Recovered/Resolved]
  - Exposure during breast feeding [Recovered/Resolved]
  - Somnolence [Recovered/Resolved]
  - Vomiting [Recovered/Resolved]
  - Sleep disorder [Recovered/Resolved]
